FAERS Safety Report 4762321-2 (Version None)
Quarter: 2005Q3

REPORT INFORMATION
  Report Type: 
  Country: None (occurrence: None)
  Receive Date: 20050907
  Receipt Date: 20050830
  Transmission Date: 20060218
  Serious: Yes (Other)
  Sender: FDA-Public Use
  Company Number: US-JNJFOC-20050802177

PATIENT
  Sex: Female
  Weight: 80.29 kg

DRUGS (16)
  1. REMICADE [Suspect]
     Route: 042
  2. REMICADE [Suspect]
     Route: 042
  3. REMICADE [Suspect]
     Route: 042
  4. REMICADE [Suspect]
     Route: 042
  5. REMICADE [Suspect]
     Route: 042
  6. REMICADE [Suspect]
     Route: 042
  7. REMICADE [Suspect]
     Route: 042
  8. REMICADE [Suspect]
     Indication: RHEUMATOID ARTHRITIS
     Route: 042
  9. PREDNISONE [Concomitant]
     Indication: RHEUMATOID ARTHRITIS
  10. ATENOLOL [Concomitant]
  11. METHOTREXATE [Concomitant]
     Indication: RHEUMATOID ARTHRITIS
  12. PROTONIX [Concomitant]
  13. ZOLOFT [Concomitant]
  14. CELEBREX [Concomitant]
  15. SEROQUEL [Concomitant]
  16. TRAMADOL HCL [Concomitant]

REACTIONS (1)
  - LUPUS-LIKE SYNDROME [None]
